FAERS Safety Report 13552276 (Version 4)
Quarter: 2017Q2

REPORT INFORMATION
  Report Type: Spontaneous
  Country: JP (occurrence: JP)
  Receive Date: 20170517
  Receipt Date: 20170615
  Transmission Date: 20170830
  Serious: Yes (Death, Hospitalization, Other)
  Sender: FDA-Public Use
  Company Number: JP-ROCHE-1934492

PATIENT
  Age: 76 Year
  Sex: Female
  Weight: 41 kg

DRUGS (7)
  1. ELPLAT [Suspect]
     Active Substance: OXALIPLATIN
     Route: 041
     Dates: start: 201704
  2. XELODA [Suspect]
     Active Substance: CAPECITABINE
     Route: 048
     Dates: start: 20170405, end: 20170501
  3. ELPLAT [Suspect]
     Active Substance: OXALIPLATIN
     Route: 041
     Dates: start: 201703
  4. ELPLAT [Suspect]
     Active Substance: OXALIPLATIN
     Indication: COLON CANCER
     Route: 041
     Dates: start: 201702
  5. ELPLAT [Suspect]
     Active Substance: OXALIPLATIN
     Route: 041
     Dates: start: 201704
  6. XELODA [Suspect]
     Active Substance: CAPECITABINE
     Indication: COLON CANCER
     Dosage: 2 WEEK ADMINISTRATION FOLLOWED BY 1 WEEK REST
     Route: 048
     Dates: start: 20170205, end: 20170328
  7. WARFARIN [Concomitant]
     Active Substance: WARFARIN
     Route: 065

REACTIONS (7)
  - Cardiac arrest [Unknown]
  - Eyelid ptosis [Unknown]
  - Altered state of consciousness [Fatal]
  - Ventricular fibrillation [Unknown]
  - Shock haemorrhagic [Fatal]
  - Blood pressure decreased [Unknown]
  - Muscular weakness [Unknown]

NARRATIVE: CASE EVENT DATE: 20170501
